FAERS Safety Report 10273594 (Version 1)
Quarter: 2014Q2

REPORT INFORMATION
  Report Type: Spontaneous
  Country: US (occurrence: None)
  Receive Date: 20140630
  Receipt Date: 20140630
  Transmission Date: 20141212
  Serious: Yes (Other)
  Sender: FDA-Public Use
  Company Number: None

PATIENT
  Age: 5 Year
  Sex: Male
  Weight: 18 kg

DRUGS (1)
  1. EPIPEN JR [Suspect]
     Indication: ANAPHYLACTIC REACTION
     Dates: start: 20140625

REACTIONS (7)
  - Food allergy [None]
  - Cough [None]
  - Dysphonia [None]
  - Urticaria [None]
  - Wheezing [None]
  - Abdominal pain [None]
  - Injury associated with device [None]
